FAERS Safety Report 7464580-4 (Version None)
Quarter: 2011Q1

REPORT INFORMATION
  Report Type: 
  Country: None (occurrence: None)
  Receive Date: 20110302
  Receipt Date: 20100930
  Transmission Date: 20110831
  Serious: Yes (Death)
  Sender: FDA-Public Use
  Company Number: 163-21880-10072132

PATIENT
  Age: 67 Year
  Sex: Female

DRUGS (3)
  1. REVLIMID [Suspect]
     Indication: MULTIPLE MYELOMA
     Dosage: 25 MG, 1 IN 1 D, PO; 25-15-25 MG, DAILY, PO; 15 MG, DAYS 1-14 EVERY 21 DAYS, PO
     Route: 048
     Dates: start: 20090201
  2. REVLIMID [Suspect]
     Indication: MULTIPLE MYELOMA
     Dosage: 25 MG, 1 IN 1 D, PO; 25-15-25 MG, DAILY, PO; 15 MG, DAYS 1-14 EVERY 21 DAYS, PO
     Route: 048
     Dates: start: 20100518, end: 20100721
  3. REVLIMID [Suspect]
     Indication: MULTIPLE MYELOMA
     Dosage: 25 MG, 1 IN 1 D, PO; 25-15-25 MG, DAILY, PO; 15 MG, DAYS 1-14 EVERY 21 DAYS, PO
     Route: 048
     Dates: start: 20060701

REACTIONS (5)
  - CARDIO-RESPIRATORY ARREST [None]
  - NEOPLASM PROGRESSION [None]
  - MULTIPLE MYELOMA [None]
  - PANCYTOPENIA [None]
  - DRUG INEFFECTIVE [None]
